FAERS Safety Report 10073229 (Version 2)
Quarter: 2014Q2

REPORT INFORMATION
  Report Type: Spontaneous
  Country: US (occurrence: US)
  Receive Date: 20140411
  Receipt Date: 20140610
  Transmission Date: 20141212
  Serious: Yes (Other)
  Sender: FDA-Public Use
  Company Number: US-GLAXOSMITHKLINE-A1068248A

PATIENT
  Age: 74 Year
  Sex: Male
  Weight: 79.5 kg

DRUGS (2)
  1. ADVAIR [Suspect]
     Indication: CHRONIC OBSTRUCTIVE PULMONARY DISEASE
     Dosage: 1PUFF PER DAY
     Route: 055
     Dates: start: 2007
  2. COMBIVENT [Concomitant]

REACTIONS (7)
  - Nephrolithiasis [Recovered/Resolved]
  - Prostatomegaly [Not Recovered/Not Resolved]
  - Chronic obstructive pulmonary disease [Recovering/Resolving]
  - Dyspnoea [Recovering/Resolving]
  - Total lung capacity decreased [Unknown]
  - Weight decreased [Unknown]
  - Visual acuity reduced [Unknown]
